FAERS Safety Report 14248165 (Version 1)
Quarter: 2017Q4

REPORT INFORMATION
  Report Type: Spontaneous
  Country: PL (occurrence: PL)
  Receive Date: 20171204
  Receipt Date: 20171204
  Transmission Date: 20180321
  Serious: Yes (Other)
  Sender: FDA-Public Use
  Company Number: PL-PFIZER INC-2017511980

PATIENT
  Age: 60 Year
  Sex: Female

DRUGS (23)
  1. PEMBROLIZUMAB. [Suspect]
     Active Substance: PEMBROLIZUMAB
     Dosage: 200 MG, CYCLIC (EVERY 4 WEEKS, 4TH CYCLE)
     Dates: start: 20170925
  2. PEMBROLIZUMAB. [Suspect]
     Active Substance: PEMBROLIZUMAB
     Dosage: UNK
  3. MAGNESIUM SULFATE. [Concomitant]
     Active Substance: MAGNESIUM SULFATE
     Dosage: 1 AMPULE, UNK
     Dates: start: 20170828
  4. DEXAVEN [Concomitant]
     Active Substance: DEXAMETHASONE
     Dosage: 4 MG, UNK
     Dates: start: 20170828
  5. PEMBROLIZUMAB. [Suspect]
     Active Substance: PEMBROLIZUMAB
     Dosage: 200 MG, CYCLIC ( EVERY 4 WEEKS, 6TH CYCLE)
     Dates: start: 20171120
  6. ONDANSETRON [Concomitant]
     Active Substance: ONDANSETRON
     Dosage: 4 MG, STRENGTH: 4MG/2ML - PACKAGE-5 AM P.2ML
     Dates: start: 20170828
  7. CARBOMEDAC [Concomitant]
     Active Substance: CARBOPLATIN
     Dosage: 255 MG, STRENGTH ALSO REPORTED AS : AUC 2-255MG; 1 PHIAL
     Dates: start: 20170807
  8. CARBOMEDAC [Concomitant]
     Active Substance: CARBOPLATIN
     Dosage: 255 MG, STRENGTH ALSO REPORTED AS : AUC 2-255MG; 1 PHIAL
     Dates: start: 20170828
  9. DEXAVEN [Concomitant]
     Active Substance: DEXAMETHASONE
     Indication: PROPHYLAXIS
     Dosage: 4 MG, UNK
     Dates: start: 20170717
  10. GEMCITABINE HYDROCHLORIDE. [Suspect]
     Active Substance: GEMCITABINE HYDROCHLORIDE
     Dosage: 1960 MG, CONCENTRATE: 100MG/25ML; 1 PHIAL
     Dates: start: 20170807
  11. PEMBROLIZUMAB. [Suspect]
     Active Substance: PEMBROLIZUMAB
     Dosage: 200 MG, CYCLIC (EVERY 3 WEEKS, SECOND CYCLE)
     Dates: start: 20170807
  12. CARBOMEDAC [Concomitant]
     Active Substance: CARBOPLATIN
     Indication: TRIPLE NEGATIVE BREAST CANCER
     Dosage: 255 MG, STRENGTH ALSO REPORTED AS : AUC 2-255MG; 1 PHIAL
     Dates: start: 20170717
  13. GEMCITABINE HYDROCHLORIDE. [Suspect]
     Active Substance: GEMCITABINE HYDROCHLORIDE
     Dosage: 1960 MG, CONCENTRATE: 100MG/25ML; 1 PHIAL
     Dates: start: 20170828
  14. PEMBROLIZUMAB. [Suspect]
     Active Substance: PEMBROLIZUMAB
     Dosage: 200 MG, CYCLIC( EVERY 4 WEEKS, FIFTH CYCLE)
     Dates: start: 20171023
  15. DEXAVEN [Concomitant]
     Active Substance: DEXAMETHASONE
     Dosage: 4 MG, UNK
     Dates: start: 20170807
  16. PEMBROLIZUMAB. [Suspect]
     Active Substance: PEMBROLIZUMAB
     Dosage: 200 MG, CYCLIC (EVERY 3 WEEKS, THIRD CYCLE)
     Dates: start: 20170828
  17. MAGNESIUM SULFATE. [Concomitant]
     Active Substance: MAGNESIUM SULFATE
     Dosage: 1 AMPULE, UNK
     Dates: start: 20170807
  18. GEMCITABINE HYDROCHLORIDE. [Suspect]
     Active Substance: GEMCITABINE HYDROCHLORIDE
     Indication: TRIPLE NEGATIVE BREAST CANCER
     Dosage: 1960 MG, CONCENTRATE: 100MG/25ML; 1 PHIAL
     Dates: start: 20170717
  19. PEMBROLIZUMAB. [Suspect]
     Active Substance: PEMBROLIZUMAB
     Indication: BREAST CANCER METASTATIC
     Dosage: 200 MG, CYCLIC (EVERY 3 WEEKS, FIRST CYCLE)
     Dates: start: 20170717
  20. ONDANSETRON [Concomitant]
     Active Substance: ONDANSETRON
     Indication: PROPHYLAXIS
     Dosage: 4 MG, STRENGTH: 4MG/2ML - PACKAGE-5 AM P.2ML
     Dates: start: 20170717
  21. MAGNESIUM SULFATE. [Concomitant]
     Active Substance: MAGNESIUM SULFATE
     Indication: PROPHYLAXIS
     Dosage: 1 AMPULE, UNK
     Dates: start: 20170717
  22. ONDANSETRON [Concomitant]
     Active Substance: ONDANSETRON
     Dosage: 4 MG, STRENGTH: 4MG/2ML - PACKAGE-5 AM P.2ML
     Dates: start: 20170807
  23. FAYTON [Concomitant]
     Indication: PROPHYLAXIS
     Dosage: 4 MG, STRENGTH: 4MG/5ML; 1 PHIAL
     Dates: start: 20170717

REACTIONS (10)
  - Neoplasm progression [Unknown]
  - Rash [Recovered/Resolved]
  - Diarrhoea [Not Recovered/Not Resolved]
  - Product use in unapproved indication [Unknown]
  - Inappropriate schedule of drug administration [Unknown]
  - Skin discolouration [Recovering/Resolving]
  - Pyrexia [Recovered/Resolved]
  - Neutrophil count decreased [Unknown]
  - Rash generalised [Recovered/Resolved]
  - Rash [Recovered/Resolved]

NARRATIVE: CASE EVENT DATE: 2017
